FAERS Safety Report 8819723 (Version 2)
Quarter: 2014Q3

REPORT INFORMATION
  Report Type: Report from Study
  Country: US (occurrence: US)
  Receive Date: 20121001
  Receipt Date: 20140915
  Transmission Date: 20150326
  Serious: Yes (Death, Other)
  Sender: FDA-Public Use
  Company Number: US-ROCHE-1129866

PATIENT
  Sex: Female

DRUGS (10)
  1. HERCEPTIN [Suspect]
     Active Substance: TRASTUZUMAB
     Indication: OVARIAN CANCER
     Dosage: LOADING DOSE, 4MG/KG.
     Route: 042
  2. HERCEPTIN [Suspect]
     Active Substance: TRASTUZUMAB
     Dosage: MAINTENANCE DOSE, 2MG/KG
     Route: 042
  3. SELENIUM [Concomitant]
     Active Substance: SELENIUM
     Route: 048
  4. TYLENOL [Concomitant]
     Active Substance: ACETAMINOPHEN
     Route: 048
  5. BENADRYL [Concomitant]
     Active Substance: DIPHENHYDRAMINE HYDROCHLORIDE
     Route: 042
  6. VITAMIN A [Concomitant]
     Active Substance: VITAMIN A
     Route: 065
  7. GENESTEIN [Concomitant]
     Route: 048
  8. BENADRYL [Concomitant]
     Active Substance: DIPHENHYDRAMINE HYDROCHLORIDE
     Route: 042
  9. VITAMIN E [Concomitant]
     Active Substance: .ALPHA.-TOCOPHEROL
     Route: 065
  10. GENESTEIN [Concomitant]
     Route: 048

REACTIONS (16)
  - Death [Fatal]
  - Asthenia [Unknown]
  - Oedema [Unknown]
  - Abdominal discomfort [Unknown]
  - Off label use [Unknown]
  - Fatigue [Unknown]
  - Dry mouth [Unknown]
  - Constipation [Unknown]
  - Metastases to lymph nodes [Unknown]
  - Vomiting [Unknown]
  - Intestinal obstruction [Unknown]
  - Nausea [Unknown]
  - Decreased appetite [Unknown]
  - No therapeutic response [Unknown]
  - Lethargy [Unknown]
  - Memory impairment [Unknown]
